FAERS Safety Report 7080309-6 (Version None)
Quarter: 2010Q4

REPORT INFORMATION
  Report Type: 
  Country: None (occurrence: None)
  Receive Date: 20101025
  Receipt Date: 20101015
  Transmission Date: 20110411
  Serious: Yes (Other)
  Sender: FDA-Public Use
  Company Number: CIP10002482

PATIENT
  Sex: Female

DRUGS (1)
  1. ASACOL [Suspect]

REACTIONS (2)
  - ARTHROPATHY [None]
  - HIP ARTHROPLASTY [None]
